FAERS Safety Report 9344112 (Version 1)
Quarter: 2013Q2

REPORT INFORMATION
  Report Type: Spontaneous
  Country: US (occurrence: None)
  Receive Date: 20130610
  Receipt Date: 20130610
  Transmission Date: 20140414
  Serious: Yes (Hospitalization)
  Sender: FDA-Public Use
  Company Number: 2012-000461

PATIENT
  Age: 64 Year
  Sex: Female

DRUGS (10)
  1. ACTONEL (RISEDRONATE SODIUM) TABLET, 150MG [Suspect]
     Indication: OSTEOPOROSIS
     Route: 048
     Dates: start: 201005, end: 201007
  2. FOSAMAX (ALENDRONATE SODIUM) [Suspect]
     Indication: OSTEOPOROSIS
     Dosage: 1 WEEK
     Route: 048
     Dates: start: 200204, end: 200512
  3. FOSAMAX D [Suspect]
     Indication: OSTEOPOROSIS
     Dosage: 2800 IU
     Route: 048
     Dates: start: 201008, end: 201009
  4. BONIVA (IBANDRONATE SODIUM) [Suspect]
     Indication: OSTEOPOROSIS
     Route: 048
     Dates: start: 201010, end: 201102
  5. LOPRESSOR (METOPROLOL TARTRATE) [Concomitant]
  6. SULAR (NISOLDIPINE) [Concomitant]
  7. HYDROCHLOROTHIAZIDE (HYDROCHLOROTHIAZIDE) [Concomitant]
  8. CARVEDIL (CARVEDILOL) [Concomitant]
  9. LISNIOPRIL (LISINOPRIL) [Concomitant]
  10. VITAMIN D /00318501/(COLECALCIFEROL) [Concomitant]

REACTIONS (8)
  - Femur fracture [None]
  - Fall [None]
  - Bone pain [None]
  - Comminuted fracture [None]
  - Stress fracture [None]
  - Bone disorder [None]
  - Low turnover osteopathy [None]
  - Pain [None]
